FAERS Safety Report 7416259-2 (Version None)
Quarter: 2011Q2

REPORT INFORMATION
  Report Type: 
  Country: None (occurrence: None)
  Receive Date: 20110414
  Receipt Date: 20110407
  Transmission Date: 20111010
  Serious: Yes (Life-Threatening, Other)
  Sender: FDA-Public Use
  Company Number: JP-CEPHALON-2011001627

PATIENT
  Age: 76 Year
  Sex: Male

DRUGS (10)
  1. AMPHOTERICIN B [Concomitant]
     Dates: start: 20101001
  2. VALACYCLOVIR HCL [Concomitant]
     Dates: start: 20110119
  3. GRANISETRON HYDROCHLORIDE [Concomitant]
     Dates: start: 20110119
  4. BENDAMUSTINE HCL [Suspect]
     Route: 042
     Dates: start: 20110222, end: 20110222
  5. MEROPENEM [Concomitant]
     Dates: start: 20110317, end: 20110322
  6. BETAMETHASONE [Concomitant]
     Dates: start: 20101001
  7. LENOGRASTIM [Concomitant]
     Dates: start: 20110214, end: 20110327
  8. SULFAMETHOXAZOLE AND TRIMETHOPRIM [Concomitant]
     Dates: start: 20101001
  9. BENDAMUSTINE HCL [Suspect]
     Indication: B-CELL LYMPHOMA
     Route: 042
     Dates: start: 20110119, end: 20110120
  10. DEXAMETHASONE [Concomitant]
     Dates: start: 20110119

REACTIONS (12)
  - SEPSIS [None]
  - BONE MARROW FAILURE [None]
  - BLOOD POTASSIUM INCREASED [None]
  - CARDIO-RESPIRATORY ARREST [None]
  - WHITE BLOOD CELL COUNT DECREASED [None]
  - RENAL IMPAIRMENT [None]
  - ABDOMINAL PAIN [None]
  - TREMOR [None]
  - PYREXIA [None]
  - SUDDEN DEATH [None]
  - CEREBRAL HAEMORRHAGE [None]
  - PLATELET COUNT DECREASED [None]
